FAERS Safety Report 9120081 (Version 1)
Quarter: 2013Q1

REPORT INFORMATION
  Report Type: Spontaneous
  Country: LT (occurrence: LT)
  Receive Date: 20130226
  Receipt Date: 20130226
  Transmission Date: 20140127
  Serious: Yes (Other)
  Sender: FDA-Public Use
  Company Number: LT-ELI_LILLY_AND_COMPANY-LT201302003060

PATIENT
  Age: 55 Year
  Sex: Male

DRUGS (3)
  1. CIALIS [Suspect]
     Indication: ERECTILE DYSFUNCTION
     Dosage: 20 MG, UNKNOWN
     Route: 048
     Dates: start: 201208
  2. OMEPRAZOL [Concomitant]
     Dosage: UNK UNK, UNKNOWN
  3. ALCOHOL [Concomitant]
     Dosage: UNK

REACTIONS (5)
  - Chromatopsia [Recovered/Resolved]
  - Erection increased [Recovered/Resolved]
  - Dysuria [Recovered/Resolved]
  - Infrequent bowel movements [Recovered/Resolved]
  - Spontaneous penile erection [Recovered/Resolved]
